FAERS Safety Report 25487658 (Version 1)
Quarter: 2025Q2

REPORT INFORMATION
  Report Type: Report from Study
  Country: US (occurrence: US)
  Receive Date: 20250627
  Receipt Date: 20250627
  Transmission Date: 20250717
  Serious: Yes (Other)
  Sender: UPSHER SMITH LABORATORIES
  Company Number: US-UPSHER-SMITH LABORATORIES, LLC-20250600946

PATIENT

DRUGS (2)
  1. VIGADRONE [Suspect]
     Active Substance: VIGABATRIN
     Indication: Product used for unknown indication
     Route: 048
     Dates: start: 20250529
  2. VIGADRONE [Suspect]
     Active Substance: VIGABATRIN
     Route: 048
     Dates: start: 20250607, end: 202506

REACTIONS (2)
  - Seizure cluster [Recovered/Resolved]
  - Somnolence [Recovered/Resolved]

NARRATIVE: CASE EVENT DATE: 20250101
